FAERS Safety Report 9147440 (Version 1)
Quarter: 2013Q1

REPORT INFORMATION
  Report Type: Spontaneous
  Country: US (occurrence: US)
  Receive Date: 20130307
  Receipt Date: 20130307
  Transmission Date: 20140127
  Serious: Yes (Other)
  Sender: FDA-Public Use
  Company Number: US-009507513-1303USA001884

PATIENT
  Sex: Female

DRUGS (10)
  1. SINGULAIR [Suspect]
     Indication: HYPERTENSION
     Dosage: 10 MG, 10 MG COCT.
     Route: 048
  2. SINGULAIR [Suspect]
     Dosage: 10 MG COCT.
     Route: 048
  3. DIHYDROCODEINE BITARTRATE [Concomitant]
     Indication: ASTHMA
  4. TRIAMCINOLONE [Concomitant]
     Indication: HIATUS HERNIA
  5. VENTOLIN (ALBUTEROL SULFATE) [Concomitant]
     Dosage: 2 DF, PRN,
  6. VENTOLIN (ALBUTEROL SULFATE) [Concomitant]
     Dosage: 2X2 PUFFS, PRN
     Route: 045
  7. AMLODIPINE [Concomitant]
     Dosage: 5 MG, UNK
     Route: 048
  8. SERETIDE [Concomitant]
     Dosage: 250 MCG
     Route: 045
  9. SERETIDE [Concomitant]
     Dosage: 2X2 PUFFS
     Route: 045
  10. OMEPRAZOLE [Concomitant]
     Dosage: 20 MG, UNK
     Route: 048

REACTIONS (3)
  - Rhinitis [Unknown]
  - Condition aggravated [Unknown]
  - Asthma [Unknown]
